FAERS Safety Report 4915759-4 (Version None)
Quarter: 2006Q1

REPORT INFORMATION
  Report Type: 
  Country: None (occurrence: None)
  Receive Date: 20060113
  Receipt Date: 20051004
  Transmission Date: 20060701
  Serious: No
  Sender: FDA-Public Use
  Company Number: 2005SP003332

PATIENT
  Age: 68 Year
  Sex: Female
  Weight: 52.1637 kg

DRUGS (6)
  1. LUNESTA [Suspect]
     Indication: INITIAL INSOMNIA
     Dosage: 2 MG;HS;ORAL
     Route: 048
     Dates: start: 20051004, end: 20051004
  2. PROPRANOLOL [Concomitant]
  3. EVISTA [Concomitant]
  4. ATIVAN [Concomitant]
  5. AMBIEN [Concomitant]
  6. MULTIVITAMIN [Concomitant]

REACTIONS (8)
  - DYSGEUSIA [None]
  - DYSPNOEA [None]
  - FEELING HOT [None]
  - HALLUCINATION [None]
  - HYPOAESTHESIA [None]
  - OEDEMA [None]
  - TACHYCARDIA [None]
  - URINARY RETENTION [None]
